FAERS Safety Report 6420444-6 (Version None)
Quarter: 2009Q4

REPORT INFORMATION
  Report Type: 
  Country: None (occurrence: None)
  Receive Date: 20091021
  Receipt Date: 20090812
  Transmission Date: 20100525
  Serious: No
  Sender: FDA-Public Use
  Company Number: ALL1-2009-02308

PATIENT
  Age: 42 Year
  Sex: Female
  Weight: 69.4 kg

DRUGS (3)
  1. VYVANSE [Suspect]
     Indication: DISTURBANCE IN ATTENTION
     Dosage: 30 MG, 1X/DAY:QD, ORAL : 50 MG, 1X/DAY:QD, ORAL : HALF OF A 50MG CAPSULE, ONE DOSE, ORAL
     Route: 048
     Dates: start: 20090722, end: 20090728
  2. VYVANSE [Suspect]
     Indication: DISTURBANCE IN ATTENTION
     Dosage: 30 MG, 1X/DAY:QD, ORAL : 50 MG, 1X/DAY:QD, ORAL : HALF OF A 50MG CAPSULE, ONE DOSE, ORAL
     Route: 048
     Dates: start: 20090728, end: 20090729
  3. VYVANSE [Suspect]
     Indication: DISTURBANCE IN ATTENTION
     Dosage: 30 MG, 1X/DAY:QD, ORAL : 50 MG, 1X/DAY:QD, ORAL : HALF OF A 50MG CAPSULE, ONE DOSE, ORAL
     Route: 048
     Dates: start: 20090810, end: 20090810

REACTIONS (9)
  - CHEST PAIN [None]
  - DRY MOUTH [None]
  - DYSPNOEA [None]
  - EMOTIONAL DISTRESS [None]
  - INCORRECT DOSE ADMINISTERED [None]
  - INSOMNIA [None]
  - NERVOUSNESS [None]
  - PAIN [None]
  - PANIC ATTACK [None]
